FAERS Safety Report 12075263 (Version 3)
Quarter: 2016Q2

REPORT INFORMATION
  Report Type: Spontaneous
  Country: US (occurrence: US)
  Receive Date: 20160212
  Receipt Date: 20160414
  Transmission Date: 20160815
  Serious: Yes (Hospitalization)
  Sender: FDA-Public Use
  Company Number: US-AUROBINDO-AUR-APL-2016-01205

PATIENT
  Age: 30 Year
  Sex: Female

DRUGS (1)
  1. TRIMETHOPRIM+SULFAMETHOXAZOLE [Suspect]
     Active Substance: SULFAMETHOXAZOLE\TRIMETHOPRIM
     Indication: IMPETIGO
     Dosage: UNK
     Route: 065

REACTIONS (10)
  - Communication disorder [Recovered/Resolved]
  - Muscle rigidity [Recovered/Resolved]
  - Mental status changes [Recovered/Resolved]
  - Leukopenia [Unknown]
  - Pyrexia [Unknown]
  - Encephalitis [Recovered/Resolved]
  - Febrile neutropenia [Unknown]
  - Thrombocytopenia [Unknown]
  - Rash morbilliform [Unknown]
  - Muscular weakness [Recovered/Resolved]
